FAERS Safety Report 24467396 (Version 1)
Quarter: 2024Q4

REPORT INFORMATION
  Report Type: Report from Study
  Country: US (occurrence: US)
  Receive Date: 20241018
  Receipt Date: 20241018
  Transmission Date: 20250115
  Serious: No
  Sender: ROCHE
  Company Number: US-ROCHE-3560035

PATIENT
  Age: 82 Year
  Sex: Female

DRUGS (3)
  1. XOLAIR [Suspect]
     Active Substance: OMALIZUMAB
     Indication: Idiopathic urticaria
     Route: 065
     Dates: start: 202310
  2. XOLAIR [Suspect]
     Active Substance: OMALIZUMAB
     Indication: Neovascular age-related macular degeneration
     Route: 065
     Dates: start: 2014, end: 2015
  3. XOLAIR [Suspect]
     Active Substance: OMALIZUMAB
     Indication: Choroidal neovascularisation

REACTIONS (2)
  - Drug ineffective [Unknown]
  - No adverse event [Unknown]
